FAERS Safety Report 25845855 (Version 1)
Quarter: 2025Q3

REPORT INFORMATION
  Report Type: Spontaneous
  Country: US (occurrence: US)
  Receive Date: 20250925
  Receipt Date: 20250925
  Transmission Date: 20251021
  Serious: Yes (Other)
  Sender: RANBAXY
  Company Number: US-SUN PHARMACEUTICAL INDUSTRIES INC-2025R1-528210

PATIENT
  Age: 44 Year
  Sex: Male

DRUGS (1)
  1. TESTOSTERONE [Suspect]
     Active Substance: TESTOSTERONE
     Indication: Muscle disorder
     Route: 065

REACTIONS (3)
  - Self-medication [Unknown]
  - Hypoglycaemia [Recovering/Resolving]
  - Thrombocytosis [Recovering/Resolving]
